FAERS Safety Report 16239551 (Version 2)
Quarter: 2019Q2

REPORT INFORMATION
  Report Type: Spontaneous
  Country: PT (occurrence: PT)
  Receive Date: 20190425
  Receipt Date: 20190521
  Transmission Date: 20190711
  Serious: Yes (Hospitalization, Other)
  Sender: FDA-Public Use
  Company Number: PHHY2019PT090597

PATIENT
  Age: 40 Year
  Sex: Male

DRUGS (6)
  1. BUPROPION. [Suspect]
     Active Substance: BUPROPION
     Indication: DRUG DEPENDENCE
     Dosage: 300 MG, QD
     Route: 065
  2. METHYLENE BLUE. [Suspect]
     Active Substance: METHYLENE BLUE
     Dosage: 50 MG, UNK
     Route: 065
  3. VALPROIC ACID. [Suspect]
     Active Substance: VALPROIC ACID
     Indication: MOOD ALTERED
     Dosage: 500 MG, QD
     Route: 065
  4. VALPROIC ACID. [Suspect]
     Active Substance: VALPROIC ACID
     Indication: AFFECTIVE DISORDER
  5. BUPROPION. [Suspect]
     Active Substance: BUPROPION
     Dosage: 16 DF, UNK
     Route: 065
  6. METHYLENE BLUE. [Suspect]
     Active Substance: METHYLENE BLUE
     Indication: METHAEMOGLOBINAEMIA
     Dosage: 100 MG, UNK
     Route: 065

REACTIONS (10)
  - Disorientation [Unknown]
  - Dyspnoea [Unknown]
  - Overdose [Unknown]
  - Confusional state [Unknown]
  - Methaemoglobinaemia [Recovered/Resolved]
  - Fatigue [Unknown]
  - Generalised tonic-clonic seizure [Recovered/Resolved]
  - Poisoning [Unknown]
  - Off label use [Unknown]
  - Cyanosis central [Unknown]
